FAERS Safety Report 8474745-0 (Version None)
Quarter: 2012Q2

REPORT INFORMATION
  Report Type: 
  Country: None (occurrence: None)
  Receive Date: 20120628
  Receipt Date: 20120626
  Transmission Date: 20120825
  Serious: Yes (Other)
  Sender: FDA-Public Use
  Company Number: US-SHIRE-ALL1-2011-04037

PATIENT
  Sex: Male
  Weight: 29.478 kg

DRUGS (6)
  1. INTUNIV [Suspect]
     Dosage: 2 MG, 1X/DAY:QD
     Route: 048
     Dates: start: 20110914, end: 20110920
  2. INTUNIV [Suspect]
     Dosage: 3 MG, 1X/DAY:QD
     Dates: start: 20110921
  3. ADDERALL 5 [Concomitant]
     Indication: ATTENTION DEFICIT/HYPERACTIVITY DISORDER
     Dosage: 20 MG, 1X/DAY:QD
     Route: 048
     Dates: start: 20110609
  4. INTUNIV [Suspect]
     Indication: ATTENTION DEFICIT/HYPERACTIVITY DISORDER
     Dosage: 1 MG, 1X/DAY:QD
     Route: 048
     Dates: start: 20110907, end: 20110913
  5. PROZAC [Concomitant]
     Indication: ANXIETY
     Dosage: 20 MG, 1X/DAY:QD
     Route: 048
     Dates: start: 20110804
  6. INTUNIV [Suspect]
     Dosage: UNK, UNKNOWN
     Route: 048
     Dates: end: 20120124

REACTIONS (3)
  - PYREXIA [None]
  - HEADACHE [None]
  - BENIGN INTRACRANIAL HYPERTENSION [None]
